FAERS Safety Report 10674005 (Version 1)
Quarter: 2014Q4

REPORT INFORMATION
  Report Type: Spontaneous
  Country: JP (occurrence: JP)
  Receive Date: 20141224
  Receipt Date: 20141224
  Transmission Date: 20150529
  Serious: Yes (Hospitalization)
  Sender: FDA-Public Use
  Company Number: JP-SA-2014SA175732

PATIENT
  Age: 69 Year
  Sex: Female

DRUGS (9)
  1. CYCLOPHOSPHAMIDE. [Suspect]
     Active Substance: CYCLOPHOSPHAMIDE
     Indication: B-CELL LYMPHOMA
     Dosage: RECIEVED 4 COURSES
     Route: 065
     Dates: start: 201003
  2. RITUXIMAB [Suspect]
     Active Substance: RITUXIMAB
     Indication: B-CELL LYMPHOMA
     Dosage: RECEIVED 6 COURSES
     Route: 065
     Dates: start: 2008
  3. RITUXIMAB [Suspect]
     Active Substance: RITUXIMAB
     Indication: B-CELL LYMPHOMA
     Dosage: RECEIVED 8 COURSES
     Route: 065
     Dates: start: 201003
  4. FLUDARABINE PHOSPHATE. [Suspect]
     Active Substance: FLUDARABINE PHOSPHATE
     Indication: B-CELL LYMPHOMA
     Dosage: DOSE: 60 MG/BODY X5; RECEIVED 3 COURSES
     Route: 065
     Dates: start: 2007
  5. FLUDARABINE PHOSPHATE. [Suspect]
     Active Substance: FLUDARABINE PHOSPHATE
     Indication: B-CELL LYMPHOMA
     Dosage: DOSE: 60 MG/BODY X5; RECEIVED 3 COURSES
     Route: 065
     Dates: start: 2008
  6. ETOPOSIDE. [Suspect]
     Active Substance: ETOPOSIDE
     Dosage: 80 MG/BODY X 3
     Route: 065
     Dates: start: 201003
  7. DEXAMETHASONE. [Suspect]
     Active Substance: DEXAMETHASONE
     Indication: B-CELL LYMPHOMA
     Dosage: 20 MG/BODY X 3
     Route: 065
     Dates: start: 201003
  8. RITUXIMAB [Suspect]
     Active Substance: RITUXIMAB
     Indication: B-CELL LYMPHOMA
     Dosage: RECEIVED 6 COURSES
     Route: 065
     Dates: start: 2007
  9. ARA-C [Suspect]
     Active Substance: CYTARABINE
     Indication: B-CELL LYMPHOMA
     Dosage: DOSE: 1000 MG/BODY X2; 4 COURSES
     Route: 065
     Dates: start: 201003

REACTIONS (7)
  - Hepatitis B DNA assay positive [Recovering/Resolving]
  - Alanine aminotransferase increased [Recovering/Resolving]
  - Lymphocyte count decreased [Recovering/Resolving]
  - Hepatitis B surface antibody positive [Recovering/Resolving]
  - Hepatitis B [Recovering/Resolving]
  - Hepatitis B DNA increased [Recovering/Resolving]
  - Blood immunoglobulin G decreased [Recovering/Resolving]

NARRATIVE: CASE EVENT DATE: 2008
